FAERS Safety Report 5284350-5 (Version None)
Quarter: 2007Q2

REPORT INFORMATION
  Report Type: 
  Country: None (occurrence: None)
  Receive Date: 20070403
  Receipt Date: 20070330
  Transmission Date: 20071010
  Serious: Yes (Death)
  Sender: FDA-Public Use
  Company Number: PHRM2007FR01156

PATIENT
  Age: 32 Year
  Sex: Female

DRUGS (1)
  1. SYNTOCINON [Suspect]
     Indication: ASSISTED DELIVERY
     Dates: start: 20050819

REACTIONS (3)
  - OBSTETRICAL PULMONARY EMBOLISM [None]
  - OVERDOSE [None]
  - UTERINE HYPERTONUS [None]
